FAERS Safety Report 15573725 (Version 1)
Quarter: 2018Q4

REPORT INFORMATION
  Report Type: Report from Study
  Country: DK (occurrence: DK)
  Receive Date: 20181101
  Receipt Date: 20181101
  Transmission Date: 20190205
  Serious: Yes (Hospitalization)
  Sender: FDA-Public Use
  Company Number: DK-ALK-ABELLO A/S-2017AA002272

PATIENT

DRUGS (8)
  1. ACARIZAX [Suspect]
     Active Substance: DERMATOPHAGOIDES FARINAE\DERMATOPHAGOIDES PTERONYSSINUS
     Dosage: 12 SQ-HDM, UNK
     Route: 048
     Dates: start: 20170316, end: 20170525
  2. DESLORATADINE. [Concomitant]
     Active Substance: DESLORATADINE
     Indication: PREMEDICATION
     Dosage: 5 MILLIGRAM
  3. DORZOLAMIDE HYDROCHLORIDE. [Concomitant]
     Active Substance: DORZOLAMIDE HYDROCHLORIDE
     Indication: GLAUCOMA
     Dosage: 2 DROP, UNK
     Dates: start: 20151201
  4. TIMOLOL MALEATE. [Concomitant]
     Active Substance: TIMOLOL MALEATE
     Indication: GLAUCOMA
     Dosage: 2 DROP, UNK
     Dates: start: 20151201
  5. AMLODIPINE [Concomitant]
     Active Substance: AMLODIPINE BESYLATE
     Indication: HYPERTENSION
     Dosage: 5 MILLIGRAM, UNK
     Dates: start: 20100901
  6. ACETAZOLAMIDE. [Concomitant]
     Active Substance: ACETAZOLAMIDE
     Indication: GLAUCOMA
     Dosage: 750 MILLIGRAM, UNK
     Dates: start: 20140901
  7. LATANOPROST. [Concomitant]
     Active Substance: LATANOPROST
     Indication: GLAUCOMA
     Dosage: 1 DROP, UNK
     Dates: start: 20120701
  8. DEXAMETHASONE SODIUM PHOSPHATE. [Concomitant]
     Active Substance: DEXAMETHASONE SODIUM PHOSPHATE
     Indication: GLAUCOMA
     Dosage: 6 DROP, UNK
     Dates: start: 20141001

REACTIONS (3)
  - Dyspnoea [Unknown]
  - Dyspnoea [Recovered/Resolved]
  - Bronchial disorder [Unknown]

NARRATIVE: CASE EVENT DATE: 20170519
